FAERS Safety Report 17603193 (Version 2)
Quarter: 2020Q2

REPORT INFORMATION
  Report Type: Spontaneous
  Country: ES (occurrence: ES)
  Receive Date: 20200331
  Receipt Date: 20200412
  Transmission Date: 20200713
  Serious: Yes (Other)
  Sender: FDA-Public Use
  Company Number: ES-BRISTOL-MYERS SQUIBB COMPANY-BMS-2020-026955

PATIENT
  Age: 52 Year

DRUGS (1)
  1. ABATACEPT [Suspect]
     Active Substance: ABATACEPT
     Indication: SYSTEMIC SCLERODERMA
     Dosage: UNK
     Route: 065

REACTIONS (2)
  - Enteritis infectious [Unknown]
  - Intentional product use issue [Unknown]
